FAERS Safety Report 6279259-4 (Version None)
Quarter: 2009Q3

REPORT INFORMATION
  Report Type: 
  Country: None (occurrence: None)
  Receive Date: 20090723
  Receipt Date: 20090717
  Transmission Date: 20100115
  Serious: Yes (Hospitalization)
  Sender: FDA-Public Use
  Company Number: US-WYE-H10195409

PATIENT
  Sex: Female
  Weight: 91.8 kg

DRUGS (2)
  1. TORISEL [Suspect]
     Indication: MULTIPLE MYELOMA
     Dosage: 10 MG IV BOLUS
     Route: 042
     Dates: start: 20090123, end: 20090602
  2. VELCADE [Suspect]
     Indication: MULTIPLE MYELOMA
     Dosage: 1 MG/M2, IV PUSH
     Route: 042
     Dates: start: 20090123, end: 20090602

REACTIONS (1)
  - ASTHMA [None]
